FAERS Safety Report 14751020 (Version 2)
Quarter: 2018Q2

REPORT INFORMATION
  Report Type: Spontaneous
  Country: US (occurrence: US)
  Receive Date: 20180412
  Receipt Date: 20180415
  Transmission Date: 20180711
  Serious: No
  Sender: FDA-Public Use
  Company Number: US-JNJFOC-20180327990

PATIENT
  Age: 70 Year
  Sex: Female

DRUGS (2)
  1. WOMENS ROGAINE UNSCENTED [Suspect]
     Active Substance: MINOXIDIL
     Route: 061
  2. WOMENS ROGAINE UNSCENTED [Suspect]
     Active Substance: MINOXIDIL
     Indication: ALOPECIA
     Dosage: 3/4 OF A CAPFUL DAILY
     Route: 061
     Dates: start: 2018

REACTIONS (2)
  - Overdose [Unknown]
  - Product formulation issue [Unknown]

NARRATIVE: CASE EVENT DATE: 2018
